FAERS Safety Report 8925977 (Version 1)
Quarter: 2012Q4

REPORT INFORMATION
  Report Type: 
  Country: US (occurrence: US)
  Receive Date: 20121126
  Receipt Date: 20121126
  Transmission Date: 20130627
  Serious: Yes (Death, Hospitalization)
  Sender: FDA-Public Use
  Company Number: US-GILEAD-2012-0065090

PATIENT
  Age: 47 Year
  Sex: Female

DRUGS (10)
  1. LETAIRIS [Suspect]
     Indication: PULMONARY HYPERTENSION
     Dosage: 10 mg, QD
     Route: 048
     Dates: start: 200605, end: 201211
  2. SILDENAFIL [Concomitant]
  3. WARFARIN [Concomitant]
  4. METHOTREXATE [Concomitant]
  5. AMLODIPINE [Concomitant]
  6. METOLAZONE [Concomitant]
  7. FUROSEMIDE [Concomitant]
  8. KCL [Concomitant]
  9. OMEPRAZOLE [Concomitant]
  10. FOLIC ACID [Concomitant]

REACTIONS (7)
  - Right ventricular failure [Fatal]
  - Pulmonary hypertension [Fatal]
  - Subdural haematoma [Unknown]
  - Pulseless electrical activity [Unknown]
  - Cardiac arrest [Unknown]
  - Speech disorder [Unknown]
  - Headache [Unknown]
